FAERS Safety Report 6581835-6 (Version None)
Quarter: 2010Q1

REPORT INFORMATION
  Report Type: 
  Country: None (occurrence: None)
  Receive Date: 20100211
  Receipt Date: 20100211
  Transmission Date: 20100710
  Serious: Yes (Other)
  Sender: FDA-Public Use
  Company Number: None

PATIENT
  Age: 59 Year
  Sex: Female
  Weight: 64.4108 kg

DRUGS (2)
  1. TYLENOL TAB [Suspect]
     Indication: POSTOPERATIVE ANALGESIA
     Dosage: 2 TABS AS NEEDED PO
     Route: 048
     Dates: start: 20100125, end: 20100201
  2. TYLENOL TAB [Suspect]

REACTIONS (2)
  - DIARRHOEA [None]
  - PRODUCT CONTAMINATION [None]
